FAERS Safety Report 14769805 (Version 7)
Quarter: 2022Q3

REPORT INFORMATION
  Report Type: Report from Study
  Country: CA (occurrence: CA)
  Receive Date: 20180417
  Receipt Date: 20220704
  Transmission Date: 20221027
  Serious: Yes (Life-Threatening, Hospitalization, Other)
  Sender: FDA-Public Use
  Company Number: CA-GLAXOSMITHKLINE-CA2018GSK064803

PATIENT

DRUGS (24)
  1. ALBUTEROL SULFATE [Suspect]
     Active Substance: ALBUTEROL SULFATE
     Indication: Product used for unknown indication
     Dosage: 2 PUFF(S), QD, 100 MG
  2. NUCALA [Suspect]
     Active Substance: MEPOLIZUMAB
     Indication: Asthma
     Dosage: 100 MG, Z (MONTHLY)
     Route: 042
     Dates: start: 20180409
  3. NUCALA [Suspect]
     Active Substance: MEPOLIZUMAB
     Indication: Asthma
     Dosage: 100 MG, Z, EVERY 4 WEEKS
     Route: 058
     Dates: start: 20180409
  4. PREDNISONE [Suspect]
     Active Substance: PREDNISONE
     Indication: Asthma
     Dosage: 60 MG, QD
     Dates: start: 2017
  5. PREDNISONE [Suspect]
     Active Substance: PREDNISONE
     Indication: Dyspnoea
     Dosage: 40 MG, QD
     Dates: start: 201703
  6. PREDNISONE [Suspect]
     Active Substance: PREDNISONE
     Dosage: 50 MG, QD
     Dates: start: 201801
  7. PREDNISONE [Suspect]
     Active Substance: PREDNISONE
     Dosage: UNK, PRN
  8. IPRATROPIUM [Concomitant]
     Active Substance: IPRATROPIUM
     Indication: Product used for unknown indication
     Dosage: 4 PUFF(S), Z
  9. ATROVENT [Concomitant]
     Active Substance: IPRATROPIUM BROMIDE
     Indication: Product used for unknown indication
     Dosage: 4 PUFF(S), Z
     Route: 055
  10. SYMBICORT [Concomitant]
     Active Substance: BUDESONIDE\FORMOTEROL FUMARATE DIHYDRATE
     Indication: Asthma
     Dosage: 2 PUFF(S), BID, 200/6 UG
     Route: 055
  11. SYMBICORT [Concomitant]
     Active Substance: BUDESONIDE\FORMOTEROL FUMARATE DIHYDRATE
     Dosage: 200 MG, QID
  12. VITAMIN D [Concomitant]
     Active Substance: VITAMIN D NOS
     Indication: Product used for unknown indication
     Dosage: 1000 MG, QD
  13. AMLODIPINE [Concomitant]
     Active Substance: AMLODIPINE BESYLATE
     Indication: Product used for unknown indication
     Dosage: 10 MG, QD
     Route: 048
  14. ASPIRIN [Concomitant]
     Active Substance: ASPIRIN
     Indication: Product used for unknown indication
     Dosage: 81 MG, QD
     Route: 048
  15. METFORMIN [Concomitant]
     Active Substance: METFORMIN HYDROCHLORIDE
     Indication: Product used for unknown indication
     Dosage: 500 MG, BID
     Route: 048
  16. PLAVIX [Concomitant]
     Active Substance: CLOPIDOGREL BISULFATE
     Indication: Product used for unknown indication
     Dosage: 75 MG, QD
     Route: 048
  17. PANTOPRAZOLE [Concomitant]
     Active Substance: PANTOPRAZOLE
     Indication: Product used for unknown indication
     Dosage: 50 MG, BID
     Route: 048
  18. ROSUVASTATIN [Concomitant]
     Active Substance: ROSUVASTATIN
     Indication: Product used for unknown indication
     Dosage: 20 MG, Z
     Route: 048
  19. OMEPRAZOLE [Concomitant]
     Active Substance: OMEPRAZOLE
     Indication: Product used for unknown indication
     Dosage: 20 MG, QD
     Route: 048
  20. INDAPAMIDE [Concomitant]
     Active Substance: INDAPAMIDE
     Indication: Product used for unknown indication
     Dosage: UNK
     Dates: start: 2017
  21. CANDESARTAN [Concomitant]
     Active Substance: CANDESARTAN
     Indication: Product used for unknown indication
     Dosage: 8 MG, QD
     Route: 048
  22. CYCLOPHOSPHAMIDE [Concomitant]
     Active Substance: CYCLOPHOSPHAMIDE
     Indication: Product used for unknown indication
     Dosage: 2 DF, QD, SPRAY
  23. MIRABEGRON [Concomitant]
     Active Substance: MIRABEGRON
     Indication: Product used for unknown indication
     Dosage: 50 MG, QD
     Route: 048
  24. MYRBETRIQ [Concomitant]
     Active Substance: MIRABEGRON
     Indication: Product used for unknown indication
     Dosage: UNK

REACTIONS (42)
  - Asthma [Unknown]
  - Anxiety [Unknown]
  - Dyspnoea [Unknown]
  - Chest pain [Recovering/Resolving]
  - Atelectasis [Recovered/Resolved]
  - Respiratory distress [Recovering/Resolving]
  - Renal impairment [Unknown]
  - Pneumonia [Unknown]
  - Acute coronary syndrome [Recovering/Resolving]
  - Hypoventilation [Unknown]
  - Upper airway obstruction [Unknown]
  - Aspiration [Unknown]
  - Cardiac disorder [Unknown]
  - Full blood count abnormal [Unknown]
  - Wheezing [Unknown]
  - Cough [Unknown]
  - Oropharyngeal pain [Unknown]
  - Myalgia [Unknown]
  - Pharyngeal erythema [Recovered/Resolved]
  - Obstructive airways disorder [Unknown]
  - Influenza [Recovering/Resolving]
  - Dysphagia [Unknown]
  - Oesophageal disorder [Unknown]
  - Chronic sinusitis [Unknown]
  - Sinus congestion [Unknown]
  - Paranasal sinus discomfort [Unknown]
  - Hyperglycaemia [Unknown]
  - Productive cough [Unknown]
  - Upper respiratory tract inflammation [Unknown]
  - Forced vital capacity decreased [Unknown]
  - Lung disorder [Unknown]
  - Bronchial wall thickening [Unknown]
  - Oral disorder [Unknown]
  - Pyrexia [Unknown]
  - Goitre [Unknown]
  - Drug ineffective [Unknown]
  - Therapeutic product effect incomplete [Unknown]
  - Sputum retention [Unknown]
  - Insomnia [Unknown]
  - Urinary tract disorder [Unknown]
  - Sleep disorder due to a general medical condition [Unknown]
  - Loss of personal independence in daily activities [Unknown]

NARRATIVE: CASE EVENT DATE: 20170101
